FAERS Safety Report 24006176 (Version 1)
Quarter: 2024Q2

REPORT INFORMATION
  Report Type: Spontaneous
  Country: US (occurrence: None)
  Receive Date: 20240622
  Receipt Date: 20240622
  Transmission Date: 20240717
  Serious: Yes (Life-Threatening, Hospitalization)
  Sender: FDA-Public Use
  Company Number: None

PATIENT
  Age: 70 Year
  Sex: Male
  Weight: 108 kg

DRUGS (1)
  1. SULFAMETHOXAZOLE\TRIMETHOPRIM [Suspect]
     Active Substance: SULFAMETHOXAZOLE\TRIMETHOPRIM
     Indication: Bursitis
     Dosage: 800/160 MG BID PO
     Route: 048
     Dates: start: 20240518, end: 20240603

REACTIONS (9)
  - Anaemia [None]
  - Confusional state [None]
  - Blood creatinine increased [None]
  - Pyrexia [None]
  - International normalised ratio increased [None]
  - Lethargy [None]
  - Liver function test increased [None]
  - Vomiting [None]
  - Drug-induced liver injury [None]

NARRATIVE: CASE EVENT DATE: 20240603
